FAERS Safety Report 10526138 (Version 2)
Quarter: 2015Q3

REPORT INFORMATION
  Report Type: Report from Study
  Country: VE (occurrence: VE)
  Receive Date: 20141017
  Receipt Date: 20150701
  Transmission Date: 20151125
  Serious: Yes (Death, Hospitalization)
  Sender: FDA-Public Use
  Company Number: VE-ABBVIE-14P-178-1296791-00

PATIENT
  Age: 36 Year
  Sex: Female

DRUGS (1)
  1. ZEMPLAR [Suspect]
     Active Substance: PARICALCITOL
     Indication: RENAL FAILURE
     Dosage: 5.4 MCG
     Route: 042
     Dates: start: 201402

REACTIONS (2)
  - Infection [Fatal]
  - Hospitalisation [Unknown]

NARRATIVE: CASE EVENT DATE: 201412
